FAERS Safety Report 9078625 (Version 1)
Quarter: 2013Q1

REPORT INFORMATION
  Report Type: Report from Study
  Country: US (occurrence: US)
  Receive Date: 20130130
  Receipt Date: 20130130
  Transmission Date: 20140127
  Serious: No
  Sender: FDA-Public Use
  Company Number: US-ABBOTT-12P-163-0973702-00

PATIENT
  Age: 71 Year
  Sex: Female

DRUGS (12)
  1. HUMIRA [Suspect]
     Indication: PSORIASIS
     Dates: start: 20120809, end: 20120809
  2. HUMIRA [Suspect]
     Dates: start: 20120816
  3. ATENOLOL [Concomitant]
     Indication: PALPITATIONS
  4. NAPROXEN [Concomitant]
     Indication: OSTEOARTHRITIS
  5. HYDROCHLORIZIDE [Concomitant]
     Indication: HYPERTENSION
  6. ZOLOFT [Concomitant]
     Indication: PAIN
  7. ZOLOFT [Concomitant]
     Indication: PAIN
  8. PROTONIX [Concomitant]
     Indication: PROPHYLAXIS
  9. VIT D [Concomitant]
     Indication: PRODUCT USED FOR UNKNOWN INDICATION
  10. SUPER OMEGA [Concomitant]
     Indication: PRODUCT USED FOR UNKNOWN INDICATION
     Dosage: 3-4 TABS A DAY
  11. B COMPLEX [Concomitant]
     Indication: PRODUCT USED FOR UNKNOWN INDICATION
  12. OPTIZINC [Concomitant]
     Indication: PRODUCT USED FOR UNKNOWN INDICATION

REACTIONS (2)
  - Feeling cold [Recovered/Resolved]
  - Feeling of body temperature change [Recovered/Resolved]
